FAERS Safety Report 6758119-6 (Version None)
Quarter: 2010Q2

REPORT INFORMATION
  Report Type: 
  Country: None (occurrence: None)
  Receive Date: 20100603
  Receipt Date: 20100517
  Transmission Date: 20101027
  Serious: Yes (Disabling, Other)
  Sender: FDA-Public Use
  Company Number: 2010AP000971

PATIENT
  Age: 51 Year
  Sex: Female

DRUGS (4)
  1. ALENDRONATE SODIUM [Suspect]
     Indication: OSTEOPOROSIS PROPHYLAXIS
     Dosage: 70 MG; QW, PO
     Route: 048
     Dates: start: 20050831
  2. CALCIUM CARBONATE [Concomitant]
  3. YRIDOSTIGMINE BROMIDE [Concomitant]
  4. NASAL PREPARATIONS [Concomitant]

REACTIONS (1)
  - EYE DISORDER [None]
